FAERS Safety Report 20056027 (Version 2)
Quarter: 2021Q4

REPORT INFORMATION
  Report Type: Spontaneous
  Country: EG (occurrence: EG)
  Receive Date: 20211111
  Receipt Date: 20211220
  Transmission Date: 20220303
  Serious: Yes (Hospitalization, Other)
  Sender: FDA-Public Use
  Company Number: EG-NOVOPROD-863468

PATIENT
  Age: 723 Month
  Sex: Female

DRUGS (6)
  1. PANTOPRAZOLE SODIUM [Concomitant]
     Active Substance: PANTOPRAZOLE SODIUM
     Indication: Abdominal discomfort
     Dosage: 1 TAB ON EMPTY STOMACH - STOPPED USING ZURCAL 40 MG 1 WEEK AGO
     Route: 048
  2. ORAVIT [Concomitant]
     Indication: Vitamin B12 abnormal
     Dosage: 1 TAB MORNING - 1 TAB NIGHT - ONE MONTH AGO
     Route: 048
  3. ATROZEMB [Concomitant]
     Indication: Blood cholesterol increased
     Dosage: 1 TAB - TWO MONTHS AGO
     Route: 048
  4. INSULIN ASPART [Suspect]
     Active Substance: INSULIN ASPART
     Indication: Diabetes mellitus
     Dosage: 50 IU, QD(WAS ~30 IU MORNING-20 IU NIGHT )
     Route: 058
  5. INSULIN ASPART [Suspect]
     Active Substance: INSULIN ASPART
     Dosage: 60 IU, QD(AFTER SURGERY 35 IU MORNING-25 IU NIGHT)
     Route: 058
  6. VASONORM [AMLODIPINE BESILATE] [Concomitant]
     Indication: Hypertension
     Dosage: 1 MORNING - 4 YEARS AGO
     Route: 048

REACTIONS (2)
  - Cholelithiasis [Unknown]
  - Hyperglycaemia [Recovered/Resolved]
